FAERS Safety Report 17847364 (Version 6)
Quarter: 2021Q3

REPORT INFORMATION
  Report Type: Other
  Country: DE (occurrence: DE)
  Receive Date: 20200601
  Receipt Date: 20210708
  Transmission Date: 20211014
  Serious: Yes (Hospitalization, Other)
  Sender: FDA-Public Use
  Company Number: DE-ROCHE-2577243

PATIENT
  Age: 51 Year
  Sex: Female
  Weight: 125 kg

DRUGS (6)
  1. DICLOFENAC [Concomitant]
     Active Substance: DICLOFENAC
  2. PREGABALIN. [Concomitant]
     Active Substance: PREGABALIN
     Dosage: 1?1?1
  3. OCREVUS [Suspect]
     Active Substance: OCRELIZUMAB
     Indication: SECONDARY PROGRESSIVE MULTIPLE SCLEROSIS
     Route: 042
     Dates: start: 20190723, end: 20200608
  4. TIZANIDINE. [Concomitant]
     Active Substance: TIZANIDINE
  5. LETROZOLE. [Concomitant]
     Active Substance: LETROZOLE
     Dosage: 0?0?1
  6. GABAPENTIN. [Concomitant]
     Active Substance: GABAPENTIN
     Dosage: 900MG ? 1500MG
     Dates: end: 202009

REACTIONS (12)
  - Haemorrhage [Recovered/Resolved]
  - Weight increased [Recovering/Resolving]
  - Herpes zoster [Recovered/Resolved]
  - Skin exfoliation [Recovered/Resolved]
  - Off label use [Unknown]
  - Polyneuropathy [Recovering/Resolving]
  - Gait disturbance [Not Recovered/Not Resolved]
  - Pain [Recovered/Resolved]
  - Breast cancer metastatic [Recovered/Resolved]
  - Balance disorder [Not Recovered/Not Resolved]
  - Drug ineffective [Unknown]
  - Lymphoedema [Recovered/Resolved]

NARRATIVE: CASE EVENT DATE: 20190723
